FAERS Safety Report 11047252 (Version 1)
Quarter: 2015Q2

REPORT INFORMATION
  Report Type: Report from Study
  Country: US (occurrence: US)
  Receive Date: 20150420
  Receipt Date: 20150420
  Transmission Date: 20150821
  Serious: No
  Sender: FDA-Public Use
  Company Number: US-AMGEN-USASL2015036156

PATIENT
  Age: 44 Year
  Sex: Male

DRUGS (1)
  1. ENBREL [Suspect]
     Active Substance: ETANERCEPT
     Indication: ANKYLOSING SPONDYLITIS
     Dosage: UNK MG, QWK
     Route: 065
     Dates: start: 20150112

REACTIONS (5)
  - Injection site pain [Unknown]
  - Injection site swelling [Unknown]
  - General symptom [Not Recovered/Not Resolved]
  - Needle issue [Unknown]
  - Injection site reaction [Unknown]

NARRATIVE: CASE EVENT DATE: 2015
